FAERS Safety Report 17414613 (Version 2)
Quarter: 2020Q1

REPORT INFORMATION
  Report Type: Report from Study
  Country: AU (occurrence: AU)
  Receive Date: 20200213
  Receipt Date: 20200225
  Transmission Date: 20200409
  Serious: Yes (Hospitalization, Other)
  Sender: FDA-Public Use
  Company Number: AU-ASTRAZENECA-2020SE06724

PATIENT
  Sex: Female
  Weight: 75 kg

DRUGS (1)
  1. IMFINZI [Suspect]
     Active Substance: DURVALUMAB
     Indication: NON-SMALL CELL LUNG CANCER STAGE III
     Route: 042
     Dates: start: 20181129

REACTIONS (7)
  - Hepatitis [Recovering/Resolving]
  - Cholangitis [Recovering/Resolving]
  - Cholecystitis [Recovering/Resolving]
  - Pancreatitis [Recovering/Resolving]
  - Hepatotoxicity [Recovering/Resolving]
  - Malignant neoplasm progression [Recovering/Resolving]
  - Colitis [Recovering/Resolving]
